FAERS Safety Report 14545682 (Version 1)
Quarter: 2018Q1

REPORT INFORMATION
  Report Type: Spontaneous
  Country: NL (occurrence: NL)
  Receive Date: 20180218
  Receipt Date: 20180218
  Transmission Date: 20180509
  Serious: Yes (Death, Hospitalization, Other)
  Sender: FDA-Public Use
  Company Number: NL-BRISTOL-MYERS SQUIBB COMPANY-BMS-2018-013483

PATIENT
  Age: 77 Year
  Sex: Female
  Weight: 61 kg

DRUGS (1)
  1. ELIQUIS [Suspect]
     Active Substance: APIXABAN
     Indication: CEREBROVASCULAR ACCIDENT PROPHYLAXIS
     Dosage: 5 MG, UNK
     Route: 065
     Dates: start: 20170103, end: 20171017

REACTIONS (9)
  - Subarachnoid haemorrhage [Unknown]
  - Delirium [Fatal]
  - Off label use [Unknown]
  - General physical condition abnormal [Fatal]
  - Adenocarcinoma of colon [Fatal]
  - Gastrointestinal haemorrhage [Unknown]
  - Pyrexia [Unknown]
  - Endocarditis bacterial [Fatal]
  - Fall [Unknown]

NARRATIVE: CASE EVENT DATE: 20170901
